FAERS Safety Report 6335785-0 (Version None)
Quarter: 2009Q3

REPORT INFORMATION
  Report Type: 
  Country: None (occurrence: None)
  Receive Date: 20090828
  Receipt Date: 20090819
  Transmission Date: 20100115
  Serious: Yes (Other)
  Sender: FDA-Public Use
  Company Number: 2009SP021095

PATIENT

DRUGS (1)
  1. INTRON A [Suspect]
     Indication: POLYCYTHAEMIA VERA

REACTIONS (1)
  - SPLENIC INFARCTION [None]
